FAERS Safety Report 6474950-9 (Version None)
Quarter: 2009Q4

REPORT INFORMATION
  Report Type: 
  Country: None (occurrence: None)
  Receive Date: 20091204
  Receipt Date: 20090715
  Transmission Date: 20100525
  Serious: Yes (Other)
  Sender: FDA-Public Use
  Company Number: US-ELI_LILLY_AND_COMPANY-US200904001302

PATIENT
  Sex: Male
  Weight: 99.773 kg

DRUGS (2)
  1. ZYPREXA [Suspect]
     Dosage: 10 MG, UNK
     Dates: start: 19920101, end: 20080101
  2. SEROQUEL [Concomitant]

REACTIONS (6)
  - BIPOLAR DISORDER [None]
  - DIABETES MELLITUS [None]
  - DIABETIC KETOACIDOSIS [None]
  - HYPERGLYCAEMIA [None]
  - MENTAL DISORDER [None]
  - WEIGHT INCREASED [None]
